FAERS Safety Report 18131393 (Version 2)
Quarter: 2020Q3

REPORT INFORMATION
  Report Type: Spontaneous
  Country: US (occurrence: US)
  Receive Date: 20200810
  Receipt Date: 20200825
  Transmission Date: 20201103
  Serious: Yes (Other)
  Sender: FDA-Public Use
  Company Number: US-AKORN PHARMACEUTICALS-2020AKN01015

PATIENT
  Age: 17 Year
  Sex: Female
  Weight: 57.6 kg

DRUGS (8)
  1. MYORISAN [Suspect]
     Active Substance: ISOTRETINOIN
     Indication: ACNE
     Dosage: 40 MG, 1X/DAY
     Route: 048
     Dates: start: 20200120, end: 202003
  2. AMNESTEEM [Suspect]
     Active Substance: ISOTRETINOIN
     Dosage: 40 MG, 1X/DAY
     Route: 048
     Dates: start: 202004, end: 202006
  3. AMNESTEEM [Suspect]
     Active Substance: ISOTRETINOIN
     Dosage: 40 MG, 1X/DAY
     Route: 048
     Dates: start: 20200325, end: 202003
  4. CLARAVIS [Suspect]
     Active Substance: ISOTRETINOIN
     Dosage: 40 MG, 1X/DAY
     Route: 048
     Dates: start: 20200219, end: 202003
  5. CLARAVIS [Suspect]
     Active Substance: ISOTRETINOIN
     Dosage: 40 MG, 1X/DAY
     Route: 048
     Dates: start: 202004, end: 202006
  6. MYORISAN [Suspect]
     Active Substance: ISOTRETINOIN
     Dosage: 40 MG, 1X/DAY
     Route: 048
     Dates: start: 202004, end: 202006
  7. AVIANE [Concomitant]
     Active Substance: ETHINYL ESTRADIOL\LEVONORGESTREL
  8. MULTIVITAMIN [Concomitant]
     Active Substance: VITAMINS

REACTIONS (4)
  - Depression [Recovered/Resolved]
  - Off label use [Recovered/Resolved]
  - Depressed mood [Recovered/Resolved]
  - Psychiatric symptom [Recovered/Resolved]

NARRATIVE: CASE EVENT DATE: 2020
